FAERS Safety Report 8548858-9 (Version None)
Quarter: 2012Q3

REPORT INFORMATION
  Report Type: 
  Country: None (occurrence: None)
  Receive Date: 20120730
  Receipt Date: 20120725
  Transmission Date: 20120928
  Serious: Yes (Death, Life-Threatening, Hospitalization)
  Sender: FDA-Public Use
  Company Number: PHHY2012BR055281

PATIENT
  Age: 86 Year
  Sex: Female

DRUGS (3)
  1. FORMOTEROL FUMARATE [Suspect]
     Indication: EMPHYSEMA
     Dosage: UNK UKN, UNK
  2. ANTICOAGULANTS [Concomitant]
  3. CAPTOPRIL [Concomitant]
     Indication: CARDIAC DISORDER

REACTIONS (6)
  - RESPIRATORY TRACT INFECTION [None]
  - DEPRESSED LEVEL OF CONSCIOUSNESS [None]
  - RESPIRATORY ARREST [None]
  - DYSPNOEA [None]
  - MALAISE [None]
  - ASTHENIA [None]
